FAERS Safety Report 4768383-0 (Version None)
Quarter: 2005Q3

REPORT INFORMATION
  Report Type: 
  Country: None (occurrence: None)
  Receive Date: 20050906
  Receipt Date: 20050725
  Transmission Date: 20060218
  Serious: No
  Sender: FDA-Public Use
  Company Number: 2005-BP-12593BP

PATIENT
  Sex: Female

DRUGS (6)
  1. SPIRIVA [Suspect]
     Indication: CHRONIC OBSTRUCTIVE PULMONARY DISEASE
     Dosage: 18 MCG (18 MCG. QD) , IH
     Route: 055
     Dates: start: 20050601, end: 20050701
  2. ADVAIR DISKUS 100/50 [Concomitant]
  3. ASPIRIN [Concomitant]
  4. CITALOPRAM HYDROBROMIDE [Concomitant]
  5. SYNTHROID [Concomitant]
  6. FLONASE [Concomitant]

REACTIONS (2)
  - CONTUSION [None]
  - DEPRESSION [None]
